FAERS Safety Report 13590285 (Version 1)
Quarter: 2017Q2

REPORT INFORMATION
  Report Type: Spontaneous
  Country: CA (occurrence: CA)
  Receive Date: 20170529
  Receipt Date: 20170529
  Transmission Date: 20170830
  Serious: Yes (Hospitalization)
  Sender: FDA-Public Use
  Company Number: CA-UNITED THERAPEUTICS-UNT-2017-007721

PATIENT
  Age: 66 Year
  Sex: Female

DRUGS (1)
  1. REMODULIN [Suspect]
     Active Substance: TREPROSTINIL
     Indication: PULMONARY ARTERIAL HYPERTENSION
     Dosage: UNK
     Route: 058

REACTIONS (4)
  - Palpitations [Unknown]
  - Pneumonia [Unknown]
  - Chills [Unknown]
  - Infusion site pain [Recovering/Resolving]

NARRATIVE: CASE EVENT DATE: 20170517
